FAERS Safety Report 10139675 (Version 2)
Quarter: 2014Q2

REPORT INFORMATION
  Report Type: Spontaneous
  Country: DE (occurrence: JP)
  Receive Date: 20140429
  Receipt Date: 20140606
  Transmission Date: 20141212
  Serious: Yes (Hospitalization)
  Sender: FDA-Public Use
  Company Number: JP-FRI-1000066876

PATIENT
  Age: 80 Year
  Sex: Male
  Weight: 68 kg

DRUGS (8)
  1. MEMANTINE [Suspect]
     Indication: DEMENTIA ALZHEIMER^S TYPE
     Dosage: 5 MG
     Route: 048
     Dates: start: 20131220, end: 20140103
  2. MEMANTINE [Suspect]
     Indication: DEMENTIA ALZHEIMER^S TYPE
     Dosage: 10 MG
     Route: 048
     Dates: start: 20140104, end: 20140108
  3. ARICEPT [Concomitant]
     Dates: start: 20130412
  4. TAKEPRON [Concomitant]
     Dates: start: 2011
  5. MAGMITT [Concomitant]
     Dates: start: 2011
  6. THYRADIN S [Concomitant]
     Dates: start: 2011
  7. URSO [Concomitant]
     Dates: start: 2011
  8. FLIVAS [Concomitant]
     Dates: start: 2011

REACTIONS (1)
  - Sedation [Recovering/Resolving]
